FAERS Safety Report 15701285 (Version 2)
Quarter: 2019Q1

REPORT INFORMATION
  Report Type: Report from Study
  Country: US (occurrence: US)
  Receive Date: 20181207
  Receipt Date: 20190204
  Transmission Date: 20190417
  Serious: Yes (Other)
  Sender: FDA-Public Use
  Company Number: US-ACTELION-A-NJ2018-174143

PATIENT
  Age: 53 Year
  Sex: Female
  Weight: 61.68 kg

DRUGS (4)
  1. ADEMPAS [Concomitant]
     Active Substance: RIOCIGUAT
  2. VELETRI [Suspect]
     Active Substance: EPOPROSTENOL
     Indication: PULMONARY ARTERIAL HYPERTENSION
     Dosage: 65 NG/KG, PER MIN
     Route: 042
  3. COUMADIN [Concomitant]
     Active Substance: WARFARIN SODIUM
  4. OPSUMIT [Concomitant]
     Active Substance: MACITENTAN

REACTIONS (10)
  - Headache [Unknown]
  - Pulmonary arterial hypertension [Unknown]
  - Weight decreased [Unknown]
  - Dyspnoea exertional [Unknown]
  - Device leakage [Unknown]
  - Diarrhoea [Unknown]
  - Disease progression [Unknown]
  - Abdominal pain upper [Unknown]
  - Flushing [Unknown]
  - Pain in jaw [Unknown]
